FAERS Safety Report 8765704 (Version 3)
Quarter: 2012Q4

REPORT INFORMATION
  Report Type: 
  Country: US (occurrence: US)
  Receive Date: 20120903
  Receipt Date: 20120919
  Transmission Date: 20130627
  Serious: Yes (Life-Threatening, Other)
  Sender: FDA-Public Use
  Company Number: PHEH2012US017019

PATIENT
  Age: 38 Year
  Sex: Female
  Weight: 57.2 kg

DRUGS (3)
  1. GILENYA [Suspect]
     Indication: MULTIPLE SCLEROSIS
     Dosage: 0.5 mg, QD
     Route: 048
     Dates: start: 20110624
  2. LORATADINE [Concomitant]
     Dosage: 10 mg, PRN
     Route: 048
  3. MULTIVITAMINS [Concomitant]
     Dosage: 1 DF, QD
     Route: 048

REACTIONS (2)
  - Breast cancer [Not Recovered/Not Resolved]
  - Breast cyst [Unknown]
